FAERS Safety Report 6580138-3 (Version None)
Quarter: 2010Q1

REPORT INFORMATION
  Report Type: 
  Country: None (occurrence: None)
  Receive Date: 20100212
  Receipt Date: 20100203
  Transmission Date: 20100710
  Serious: Yes (Other)
  Sender: FDA-Public Use
  Company Number: FR-TEVA-221423ISR

PATIENT
  Sex: Male

DRUGS (4)
  1. COPAXONE [Suspect]
     Indication: MULTIPLE SCLEROSIS
     Route: 058
  2. AMITRIPTYLINE HYDROCHLORIDE [Concomitant]
     Route: 048
  3. PREGABALIN [Concomitant]
     Route: 048
  4. ALPRAZOLAM [Concomitant]
     Route: 048

REACTIONS (2)
  - CHOLESTASIS [None]
  - CYTOLYTIC HEPATITIS [None]
